FAERS Safety Report 5397637-2 (Version None)
Quarter: 2007Q3

REPORT INFORMATION
  Report Type: 
  Country: None (occurrence: None)
  Receive Date: 20070723
  Receipt Date: 20070723
  Transmission Date: 20080115
  Serious: No
  Sender: FDA-Public Use
  Company Number: None

PATIENT
  Age: 18 Year
  Sex: Male
  Weight: 81.6475 kg

DRUGS (1)
  1. CEPHALEXIN [Suspect]
     Indication: INFECTED CYST
     Dosage: 500 MGS 4 TIMES A DAY
     Dates: start: 20070716, end: 20070721

REACTIONS (3)
  - DYSPHAGIA [None]
  - DYSPNOEA [None]
  - VOMITING [None]
